FAERS Safety Report 8607288-1 (Version None)
Quarter: 2012Q3

REPORT INFORMATION
  Report Type: 
  Country: None (occurrence: None)
  Receive Date: 20120807
  Receipt Date: 20120724
  Transmission Date: 20120928
  Serious: Yes (Other)
  Sender: FDA-Public Use
  Company Number: DKLU1083629

PATIENT

DRUGS (6)
  1. TOPIRAMATE [Suspect]
     Indication: LENNOX-GASTAUT SYNDROME
  2. NITRAZEPAM [Concomitant]
  3. ONFI [Suspect]
     Indication: LENNOX-GASTAUT SYNDROME
  4. CLONAZEPAM [Suspect]
     Indication: LENNOX-GASTAUT SYNDROME
  5. VALPROIC ACID [Suspect]
     Indication: LENNOX-GASTAUT SYNDROME
  6. LAMOTRIGINE [Suspect]
     Indication: LENNOX-GASTAUT SYNDROME

REACTIONS (6)
  - DEVELOPMENTAL DELAY [None]
  - DROP ATTACKS [None]
  - FALL [None]
  - DRUG INEFFECTIVE [None]
  - CONVULSION [None]
  - INJURY [None]
